FAERS Safety Report 17198039 (Version 1)
Quarter: 2019Q4

REPORT INFORMATION
  Report Type: Spontaneous
  Country: SE (occurrence: SE)
  Receive Date: 20191225
  Receipt Date: 20191225
  Transmission Date: 20200122
  Serious: Yes (Hospitalization)
  Sender: FDA-Public Use
  Company Number: SE-TEVA-2019-SE-1156141

PATIENT
  Sex: Female

DRUGS (5)
  1. IMDUR [Suspect]
     Active Substance: ISOSORBIDE MONONITRATE
     Dosage: 45 MILLIGRAM
     Route: 048
     Dates: start: 20180615, end: 20180615
  2. RAMIPRIL. [Suspect]
     Active Substance: RAMIPRIL
     Dosage: 7.5 MILLIGRAM
     Route: 048
     Dates: start: 20180615, end: 20180615
  3. PROPAVAN [Suspect]
     Active Substance: PROPIOMAZINE
     Dosage: 150 MILLIGRAM
     Route: 048
     Dates: start: 20180615, end: 20180615
  4. STESOLID [Suspect]
     Active Substance: DIAZEPAM
     Dosage: 45 MILLIGRAM
     Route: 048
     Dates: start: 20180615, end: 20180615
  5. IMOVANE [Suspect]
     Active Substance: ZOPICLONE
     Dosage: 22.5 MILLIGRAM
     Route: 048
     Dates: start: 20180615, end: 20180615

REACTIONS (4)
  - Intentional overdose [Unknown]
  - Intentional self-injury [Unknown]
  - Blood pressure increased [Unknown]
  - Fatigue [Unknown]

NARRATIVE: CASE EVENT DATE: 201806
